FAERS Safety Report 5429268-X (Version None)
Quarter: 2007Q3

REPORT INFORMATION
  Report Type: 
  Country: None (occurrence: None)
  Receive Date: 20070829
  Receipt Date: 20070828
  Transmission Date: 20080115
  Serious: Yes (Other)
  Sender: FDA-Public Use
  Company Number: US-PURDUE-USA_2007_0028177

PATIENT
  Sex: Male
  Weight: 102 kg

DRUGS (5)
  1. OXYCONTIN [Suspect]
     Indication: PAIN
     Dosage: 20 MG, QID
     Dates: start: 19990529, end: 20010714
  2. LEVAQUIN [Concomitant]
     Indication: HELICOBACTER GASTRITIS
  3. PEPCID [Concomitant]
     Indication: GASTRIC ULCER
  4. PRILOSEC [Concomitant]
     Indication: GASTRIC ULCER
  5. ANTIDEPRESSANTS [Concomitant]

REACTIONS (14)
  - ANOREXIA [None]
  - DRUG ABUSER [None]
  - DRUG DEPENDENCE [None]
  - DRUG WITHDRAWAL SYNDROME [None]
  - DYSKINESIA [None]
  - EUPHORIC MOOD [None]
  - GASTRIC ULCER HAEMORRHAGE [None]
  - INSOMNIA [None]
  - MALAISE [None]
  - MENTAL IMPAIRMENT [None]
  - NIGHTMARE [None]
  - SEDATION [None]
  - SOMNOLENCE [None]
  - SUICIDAL IDEATION [None]
